FAERS Safety Report 7745176-3 (Version None)
Quarter: 2011Q3

REPORT INFORMATION
  Report Type: 
  Country: None (occurrence: None)
  Receive Date: 20110907
  Receipt Date: 20110822
  Transmission Date: 20111222
  Serious: Yes (Death, Hospitalization, Other)
  Sender: FDA-Public Use
  Company Number: FK201101765

PATIENT
  Age: 73 Year
  Sex: Female

DRUGS (2)
  1. VANCOMYCIN [Suspect]
     Indication: ENDOCARDITIS
     Dosage: 15 MG/KG, 12 HR,
     Dates: start: 20110407
  2. VANCOMYCIN [Suspect]
     Indication: STAPHYLOCOCCAL INFECTION
     Dosage: 15 MG/KG, 12 HR,
     Dates: start: 20110407

REACTIONS (9)
  - NEUROLOGICAL DECOMPENSATION [None]
  - BRAIN ABSCESS [None]
  - CONDITION AGGRAVATED [None]
  - HYPOTENSION [None]
  - RETINAL EXUDATES [None]
  - MENTAL STATUS CHANGES [None]
  - PYREXIA [None]
  - ABSCESS BACTERIAL [None]
  - TREATMENT FAILURE [None]
